FAERS Safety Report 16810777 (Version 3)
Quarter: 2019Q4

REPORT INFORMATION
  Report Type: Spontaneous
  Country: JP (occurrence: JP)
  Receive Date: 20190916
  Receipt Date: 20191107
  Transmission Date: 20200122
  Serious: Yes (Other)
  Sender: FDA-Public Use
  Company Number: JP-PFIZER INC-2019390321

PATIENT
  Age: 72 Year
  Sex: Male

DRUGS (13)
  1. BROTIZOLAM [Concomitant]
     Active Substance: BROTIZOLAM
     Dosage: 0.25 MG, UNK
  2. ROSUVASTATIN CALCIUM. [Concomitant]
     Active Substance: ROSUVASTATIN CALCIUM
     Dosage: 2.5 MG, UNK
  3. CALONAL [Concomitant]
     Active Substance: ACETAMINOPHEN
     Dosage: 200 MG, UNK
  4. CP COMBINATION [Concomitant]
     Dosage: UNK
  5. FEXOFENADINE HYDROCHLORIDE. [Concomitant]
     Active Substance: FEXOFENADINE HYDROCHLORIDE
     Dosage: 60 MG, UNK
  6. MEDROL [Suspect]
     Active Substance: METHYLPREDNISOLONE
     Indication: RHEUMATIC DISORDER
     Dosage: UNK
     Route: 048
  7. LANSOPRAZOLE. [Concomitant]
     Active Substance: LANSOPRAZOLE
     Dosage: 15 MG, UNK
  8. EVIPROSTAT [Concomitant]
     Active Substance: CHIMAPHILA UMBELLATA\MANGANESE CHLORIDE\POPULUS TREMULOIDES\SODIUM TAUROCHOLATE
     Dosage: UNK
  9. URIEF [Concomitant]
     Active Substance: SILODOSIN
     Dosage: 4 MG, UNK
  10. POLYCARBOPHIL CA [Concomitant]
     Active Substance: CALCIUM POLYCARBOPHIL
     Dosage: UNK
  11. IMBRUVICA [Suspect]
     Active Substance: IBRUTINIB
     Dosage: 140 MG, UNK
     Dates: start: 20180723
  12. MIYA-BM [Concomitant]
     Active Substance: CLOSTRIDIUM BUTYRICUM SPORES STRAIN M-55
     Dosage: UNK
  13. CALFINA [Concomitant]
     Active Substance: ALFACALCIDOL
     Dosage: 0.25 UG, UNK

REACTIONS (10)
  - Hypokalaemia [Not Recovered/Not Resolved]
  - Blood creatinine increased [Unknown]
  - Platelet count increased [Unknown]
  - Red blood cell count decreased [Unknown]
  - Ecchymosis [Not Recovered/Not Resolved]
  - Haematocrit decreased [Unknown]
  - Haemorrhage subcutaneous [Not Recovered/Not Resolved]
  - Blood alkaline phosphatase increased [Unknown]
  - Alopecia [Not Recovered/Not Resolved]
  - Haemoglobin decreased [Unknown]
